FAERS Safety Report 7715109-4 (Version None)
Quarter: 2011Q3

REPORT INFORMATION
  Report Type: 
  Country: None (occurrence: None)
  Receive Date: 20110829
  Receipt Date: 20110816
  Transmission Date: 20111222
  Serious: Yes (Other)
  Sender: FDA-Public Use
  Company Number: JP-ELI_LILLY_AND_COMPANY-JP201108003082

PATIENT
  Sex: Female

DRUGS (3)
  1. ASPIRIN [Concomitant]
     Indication: THROMBOSIS
     Dosage: UNK
  2. WARFARIN SODIUM [Concomitant]
     Indication: THROMBOSIS
  3. GEMZAR [Suspect]
     Indication: OVARIAN CANCER
     Dosage: UNK
     Route: 042

REACTIONS (1)
  - CEREBRAL HAEMORRHAGE [None]
